FAERS Safety Report 9479396 (Version 6)
Quarter: 2013Q4

REPORT INFORMATION
  Report Type: Spontaneous
  Country: US (occurrence: US)
  Receive Date: 20130827
  Receipt Date: 20131022
  Transmission Date: 20140711
  Serious: Yes (Death, Other)
  Sender: FDA-Public Use
  Company Number: US-PFIZER INC-2013244468

PATIENT
  Age: 68 Year
  Sex: Male
  Weight: 74.83 kg

DRUGS (5)
  1. SUTENT [Suspect]
     Indication: RENAL CANCER METASTATIC
     Dosage: 37.5 MG, DAILY (4 WEEKS ON AND 2 WEEKS OFF)
     Route: 048
     Dates: start: 20130730, end: 20130826
  2. ZOFRAN [Concomitant]
     Dosage: UNK
  3. PERCOCET-5 [Concomitant]
     Dosage: UNK
  4. NEXIUM [Concomitant]
     Indication: GASTROOESOPHAGEAL REFLUX DISEASE
     Dosage: 40 MG, DAILY
  5. MIRALAX [Concomitant]
     Indication: CONSTIPATION
     Dosage: 17 G, DAILY

REACTIONS (13)
  - Disease progression [Fatal]
  - Renal cancer metastatic [Fatal]
  - Abdominal pain [Not Recovered/Not Resolved]
  - Abdominal distension [Not Recovered/Not Resolved]
  - Decreased appetite [Unknown]
  - Fatigue [Not Recovered/Not Resolved]
  - Stomatitis [Unknown]
  - Oral pain [Not Recovered/Not Resolved]
  - Feeling abnormal [Not Recovered/Not Resolved]
  - Discomfort [Not Recovered/Not Resolved]
  - Blister [Recovered/Resolved with Sequelae]
  - Constipation [Not Recovered/Not Resolved]
  - Mouth ulceration [Recovered/Resolved]
